FAERS Safety Report 11380407 (Version 1)
Quarter: 2015Q3

REPORT INFORMATION
  Report Type: Spontaneous
  Country: US (occurrence: US)
  Receive Date: 20150814
  Receipt Date: 20150814
  Transmission Date: 20151125
  Serious: No
  Sender: FDA-Public Use
  Company Number: US-JNJFOC-20150714961

PATIENT
  Sex: Female

DRUGS (2)
  1. REMICADE [Suspect]
     Active Substance: INFLIXIMAB
     Indication: CROHN^S DISEASE
     Route: 042
     Dates: start: 201507
  2. REMICADE [Suspect]
     Active Substance: INFLIXIMAB
     Indication: CROHN^S DISEASE
     Route: 042
     Dates: start: 20150720

REACTIONS (6)
  - Muscle spasms [Unknown]
  - Peripheral swelling [Unknown]
  - Pain in extremity [Unknown]
  - Pruritus [Unknown]
  - Infusion related reaction [Unknown]
  - Pain [Unknown]

NARRATIVE: CASE EVENT DATE: 201507
